FAERS Safety Report 7323642-2 (Version None)
Quarter: 2011Q1

REPORT INFORMATION
  Report Type: 
  Country: None (occurrence: None)
  Receive Date: 20110301
  Receipt Date: 20110217
  Transmission Date: 20110831
  Serious: Yes (Hospitalization)
  Sender: FDA-Public Use
  Company Number: US-ACTELION-A-NJ2011-44140

PATIENT

DRUGS (2)
  1. COUMADIN [Concomitant]
  2. TRACLEER [Suspect]
     Indication: PULMONARY ARTERIAL HYPERTENSION
     Dosage: UNK
     Route: 048
     Dates: start: 20070320

REACTIONS (5)
  - DEHYDRATION [None]
  - CARDIAC PACEMAKER INSERTION [None]
  - VOMITING [None]
  - DIARRHOEA [None]
  - RENAL FAILURE ACUTE [None]
